FAERS Safety Report 6215676-6 (Version None)
Quarter: 2009Q2

REPORT INFORMATION
  Report Type: 
  Country: None (occurrence: None)
  Receive Date: 20090603
  Receipt Date: 20090603
  Transmission Date: 20091009
  Serious: Yes (Other)
  Sender: FDA-Public Use
  Company Number: None

PATIENT
  Age: 16 Year
  Sex: Male
  Weight: 65.7716 kg

DRUGS (1)
  1. SOTRET [Suspect]
     Dosage: 1 PO BID
     Dates: start: 20090105, end: 20090416

REACTIONS (1)
  - TREATMENT FAILURE [None]
